FAERS Safety Report 7045999-2 (Version None)
Quarter: 2010Q4

REPORT INFORMATION
  Report Type: 
  Country: None (occurrence: None)
  Receive Date: 20101014
  Receipt Date: 20101004
  Transmission Date: 20110411
  Serious: Yes (Other)
  Sender: FDA-Public Use
  Company Number: HK-PFIZER INC-2010119878

PATIENT
  Age: 43 Year
  Sex: Male

DRUGS (2)
  1. SUTENT [Suspect]
     Indication: PANCREATIC NEUROENDOCRINE TUMOUR
     Dosage: 50 MG, 1X/DAY, 4 WEEKS THEN REST FOR 2 WEEKS
     Route: 048
     Dates: start: 20080701, end: 20081217
  2. SUTENT [Suspect]
     Dosage: 37.5 MG, UNK
     Route: 048
     Dates: start: 20090108, end: 20091202

REACTIONS (8)
  - ABDOMINAL DISCOMFORT [None]
  - DERMATITIS EXFOLIATIVE [None]
  - DIARRHOEA [None]
  - DISEASE PROGRESSION [None]
  - HYPERTENSION [None]
  - MALAISE [None]
  - PANCREATIC NEUROENDOCRINE TUMOUR [None]
  - THROMBOCYTOPENIA [None]
